FAERS Safety Report 7366442-X (Version None)
Quarter: 2011Q1

REPORT INFORMATION
  Report Type: 
  Country: None (occurrence: None)
  Receive Date: 20110322
  Receipt Date: 20110316
  Transmission Date: 20110831
  Serious: Yes (Other)
  Sender: FDA-Public Use
  Company Number: US-AMGEN-USASP2010007554

PATIENT
  Age: 57 Year
  Sex: Female
  Weight: 77.551 kg

DRUGS (1)
  1. ENBREL [Suspect]
     Indication: RHEUMATOID ARTHRITIS
     Dosage: 50 MG, QWK
     Dates: start: 20100525, end: 20101118

REACTIONS (4)
  - DYSPNOEA [None]
  - COUGH [None]
  - SINUSITIS [None]
  - SINUS OPERATION [None]
